FAERS Safety Report 13564195 (Version 9)
Quarter: 2017Q2

REPORT INFORMATION
  Report Type: Spontaneous
  Country: IT (occurrence: IT)
  Receive Date: 20170519
  Receipt Date: 20170616
  Transmission Date: 20170830
  Serious: Yes (Hospitalization, Other)
  Sender: FDA-Public Use
  Company Number: IT-PFIZER INC-2017218215

PATIENT
  Age: 74 Year
  Sex: Male

DRUGS (9)
  1. LORAZEPAM. [Interacting]
     Active Substance: LORAZEPAM
     Indication: TOXICITY TO VARIOUS AGENTS
     Dosage: 19 MG, TOTAL
     Route: 048
     Dates: start: 20170425, end: 20170425
  2. COUMADIN [Interacting]
     Active Substance: WARFARIN SODIUM
     Indication: TOXICITY TO VARIOUS AGENTS
     Dosage: UNK, TOTAL
     Route: 048
     Dates: start: 20170425, end: 20170425
  3. COUMADIN [Interacting]
     Active Substance: WARFARIN SODIUM
     Indication: TOXICITY TO VARIOUS AGENTS
  4. TARGIN [Interacting]
     Active Substance: NALOXONE HYDROCHLORIDE\OXYCODONE HYDROCHLORIDE
     Indication: TOXICITY TO VARIOUS AGENTS
     Dosage: 840 MG, TOTAL
     Route: 048
     Dates: start: 20170425, end: 20170425
  5. RAMIPRIL. [Suspect]
     Active Substance: RAMIPRIL
     Indication: ACCIDENTAL POISONING
     Dosage: 17.5 MG, TOTAL
     Route: 048
     Dates: start: 20170425, end: 20170425
  6. LAROXYL [Interacting]
     Active Substance: AMITRIPTYLINE
     Indication: TOXICITY TO VARIOUS AGENTS
  7. LAROXYL [Interacting]
     Active Substance: AMITRIPTYLINE
     Indication: TOXICITY TO VARIOUS AGENTS
     Dosage: 20 ML, TOTAL
     Route: 048
     Dates: start: 20170425, end: 20170425
  8. LORAZEPAM. [Interacting]
     Active Substance: LORAZEPAM
     Indication: TOXICITY TO VARIOUS AGENTS
  9. TARGIN [Interacting]
     Active Substance: NALOXONE HYDROCHLORIDE\OXYCODONE HYDROCHLORIDE
     Indication: TOXICITY TO VARIOUS AGENTS

REACTIONS (7)
  - Drug interaction [Unknown]
  - Sopor [Recovered/Resolved]
  - Toxicity to various agents [Recovered/Resolved]
  - Pneumonia [Recovered/Resolved]
  - Intentional overdose [Recovered/Resolved]
  - Coma [Recovered/Resolved]
  - Urosepsis [Recovered/Resolved]

NARRATIVE: CASE EVENT DATE: 20170425
